FAERS Safety Report 8909934 (Version 1)
Quarter: 2012Q4

REPORT INFORMATION
  Report Type: 
  Country: US (occurrence: US)
  Receive Date: 20121115
  Receipt Date: 20121115
  Transmission Date: 20130627
  Serious: Yes (Hospitalization)
  Sender: FDA-Public Use
  Company Number: US-PFIZER INC-2012285366

PATIENT
  Age: 51 Year
  Sex: Female
  Weight: 68.03 kg

DRUGS (3)
  1. EFFEXOR XR [Suspect]
     Indication: DEPRESSION
     Dosage: 75 mg, daily
     Route: 048
  2. KEPPRA [Suspect]
     Dosage: 500 mg, daily
  3. SYNTHROID [Concomitant]
     Indication: THYROID DISORDER
     Dosage: 100 ug, daily

REACTIONS (3)
  - Cardiac failure [Unknown]
  - Pneumonia [Unknown]
  - Incorrect dose administered [Unknown]
